FAERS Safety Report 23753592 (Version 3)
Quarter: 2024Q2

REPORT INFORMATION
  Report Type: Spontaneous
  Country: JP (occurrence: None)
  Receive Date: 20240417
  Receipt Date: 20240618
  Transmission Date: 20240716
  Serious: Yes (Hospitalization)
  Sender: FDA-Public Use
  Company Number: 2024A047101

PATIENT
  Age: 18004 Day
  Sex: Female

DRUGS (10)
  1. FASENRA [Suspect]
     Active Substance: BENRALIZUMAB
     Indication: NSAID exacerbated respiratory disease
     Route: 058
     Dates: start: 20230601, end: 20230627
  2. FASENRA [Suspect]
     Active Substance: BENRALIZUMAB
     Indication: NSAID exacerbated respiratory disease
     Route: 058
     Dates: start: 20230725
  3. SYMBICORT [Concomitant]
     Active Substance: BUDESONIDE\FORMOTEROL FUMARATE DIHYDRATE
     Indication: NSAID exacerbated respiratory disease
     Dosage: 4 DF, TWO TIMES A DAY
     Route: 055
     Dates: start: 20230621
  4. GLYCOPYRROLATE\INDACATEROL\MOMETASONE FUROATE [Concomitant]
     Active Substance: GLYCOPYRROLATE\INDACATEROL\MOMETASONE FUROATE
     Indication: NSAID exacerbated respiratory disease
     Route: 055
     Dates: start: 20230525, end: 20230620
  5. KIPRES OD [Concomitant]
     Indication: NSAID exacerbated respiratory disease
     Route: 048
     Dates: start: 20160331
  6. ACTONEL [Concomitant]
     Active Substance: RISEDRONATE SODIUM
     Indication: Osteoporosis prophylaxis
     Route: 048
     Dates: start: 20161213
  7. DESLORATADINE [Concomitant]
     Active Substance: DESLORATADINE
     Indication: NSAID exacerbated respiratory disease
     Route: 048
     Dates: start: 20210518
  8. FLUTICASONE FUROATE [Concomitant]
     Active Substance: FLUTICASONE FUROATE
     Indication: Sinusitis
     Dosage: 2 SPRAYS IN EACH NOSTRIL
     Route: 045
     Dates: start: 20200514
  9. SUPLATAST TOSILATE [Concomitant]
     Active Substance: SUPLATAST TOSILATE
     Indication: NSAID exacerbated respiratory disease
     Route: 048
     Dates: start: 20201215
  10. PREDONINE [Concomitant]
     Active Substance: PREDNISOLONE
     Indication: NSAID exacerbated respiratory disease
     Route: 048
     Dates: start: 20230620, end: 20230627

REACTIONS (6)
  - Abdominal pain [Recovered/Resolved]
  - Nausea [Recovered/Resolved]
  - Decreased appetite [Recovered/Resolved]
  - Duodenitis [Unknown]
  - Colitis [Unknown]
  - Diarrhoea [Unknown]

NARRATIVE: CASE EVENT DATE: 20230718
